FAERS Safety Report 11742625 (Version 2)
Quarter: 2016Q2

REPORT INFORMATION
  Report Type: Spontaneous
  Country: IT (occurrence: IT)
  Receive Date: 20151116
  Receipt Date: 20160503
  Transmission Date: 20160815
  Serious: Yes (Hospitalization)
  Sender: FDA-Public Use
  Company Number: IT-PFIZER INC-2015382292

PATIENT
  Age: 33 Year
  Sex: Male

DRUGS (2)
  1. CIPROXIN /00697201/ [Concomitant]
     Active Substance: CIPROFLOXACIN
     Indication: VIRAL INFECTION
     Dosage: 1000 MG, UNK
     Route: 048
     Dates: start: 20151008, end: 20151010
  2. SALAZOPYRIN EN [Suspect]
     Active Substance: SULFASALAZINE
     Indication: COLITIS ULCERATIVE
     Dosage: 1500 MG, DAILY
     Route: 048
     Dates: start: 20150919, end: 20151010

REACTIONS (1)
  - Drug reaction with eosinophilia and systemic symptoms [Recovered/Resolved]

NARRATIVE: CASE EVENT DATE: 20151010
